FAERS Safety Report 7912257-0 (Version None)
Quarter: 2011Q4

REPORT INFORMATION
  Report Type: 
  Country: None (occurrence: None)
  Receive Date: 20111114
  Receipt Date: 20111109
  Transmission Date: 20120403
  Serious: Yes (Hospitalization, Disabling)
  Sender: FDA-Public Use
  Company Number: US-MERCK-1107USA01267

PATIENT
  Age: 41 Year
  Sex: Female

DRUGS (3)
  1. FOSAMAX [Suspect]
     Indication: OSTEOPOROSIS
     Route: 048
     Dates: start: 20000401, end: 20080201
  2. ALENDRONATE SODIUM [Suspect]
     Indication: OSTEOPOROSIS
     Route: 048
     Dates: start: 20080201, end: 20110101
  3. CORTICOSTEROIDS (UNSPECIFIED) [Concomitant]
     Route: 065
     Dates: start: 19960101

REACTIONS (14)
  - RHEUMATOID ARTHRITIS [None]
  - TYPE 2 DIABETES MELLITUS [None]
  - BACK INJURY [None]
  - VITAMIN D DEFICIENCY [None]
  - HYPERTENSION [None]
  - CHEST PAIN [None]
  - EYE DISORDER [None]
  - GAIT DISTURBANCE [None]
  - FEMUR FRACTURE [None]
  - DENTAL CARIES [None]
  - ASTHMA [None]
  - FOOT FRACTURE [None]
  - FALL [None]
  - BACK PAIN [None]
